FAERS Safety Report 5091230-7 (Version None)
Quarter: 2006Q3

REPORT INFORMATION
  Report Type: 
  Country: None (occurrence: None)
  Receive Date: 20060825
  Receipt Date: 20060825
  Transmission Date: 20061208
  Serious: Yes (Life-Threatening, Hospitalization, Other)
  Sender: FDA-Public Use
  Company Number: None

PATIENT
  Age: 23 Year
  Sex: Female
  Weight: 72.5755 kg

DRUGS (1)
  1. DEPO-PROVERA [Suspect]
     Indication: CONTRACEPTION
     Dosage: NORMAL DOSE   EVERY 3 MONTHS   IM
     Route: 030
     Dates: start: 19981219, end: 20040201

REACTIONS (7)
  - ABORTION SPONTANEOUS [None]
  - ALOPECIA [None]
  - DRUG EXPOSURE BEFORE PREGNANCY [None]
  - INFERTILITY FEMALE [None]
  - MOOD SWINGS [None]
  - PREGNANCY [None]
  - WEIGHT INCREASED [None]
